FAERS Safety Report 5629406-X (Version None)
Quarter: 2008Q1

REPORT INFORMATION
  Report Type: 
  Country: None (occurrence: None)
  Receive Date: 20080215
  Receipt Date: 20080215
  Transmission Date: 20080703
  Serious: Yes (Death)
  Sender: FDA-Public Use
  Company Number: None

PATIENT
  Sex: Female

DRUGS (2)
  1. REMICADE [Suspect]
     Indication: RHEUMATOID ARTHRITIS
     Dosage: 400 MG Q MO  IV
     Route: 042
     Dates: start: 20050801, end: 20070901
  2. METHOTREXATE [Suspect]
     Dosage: 10MG  Q WK  PO
     Route: 048

REACTIONS (5)
  - METASTASES TO BONE [None]
  - METASTASES TO LIVER [None]
  - METASTASES TO PERITONEUM [None]
  - NO THERAPEUTIC RESPONSE [None]
  - PANCREATIC CARCINOMA METASTATIC [None]
